FAERS Safety Report 24092663 (Version 1)
Quarter: 2024Q3

REPORT INFORMATION
  Report Type: Spontaneous
  Country: CN (occurrence: CN)
  Receive Date: 20240715
  Receipt Date: 20240715
  Transmission Date: 20241016
  Serious: Yes (Other)
  Sender: NOVARTIS
  Company Number: CN-002147023-NVSC2024CN006165

PATIENT
  Age: 50 Year
  Sex: Male

DRUGS (1)
  1. VOTRIENT [Suspect]
     Active Substance: PAZOPANIB HYDROCHLORIDE
     Indication: Renal cell carcinoma
     Dosage: 600 MG THROUGH THE MOUTH
     Route: 048
     Dates: start: 20210724

REACTIONS (2)
  - Disease progression [Unknown]
  - Diarrhoea [Unknown]
